FAERS Safety Report 21692388 (Version 1)
Quarter: 2022Q4

REPORT INFORMATION
  Report Type: Spontaneous
  Country: US (occurrence: None)
  Receive Date: 20221207
  Receipt Date: 20221207
  Transmission Date: 20230113
  Serious: Yes (Other)
  Sender: FDA-Public Use
  Company Number: 2022A393264

PATIENT
  Sex: Female
  Weight: 50.6 kg

DRUGS (2)
  1. BRILINTA [Suspect]
     Active Substance: TICAGRELOR
     Indication: Myocardial infarction
     Route: 048
     Dates: start: 2013
  2. ASPIRIN [Concomitant]
     Active Substance: ASPIRIN
     Route: 065

REACTIONS (9)
  - Acute myocardial infarction [Recovered/Resolved]
  - Hypoaesthesia [Unknown]
  - Flank pain [Not Recovered/Not Resolved]
  - Bladder disorder [Not Recovered/Not Resolved]
  - Urinary tract infection [Not Recovered/Not Resolved]
  - Chest pain [Unknown]
  - Muscle spasms [Unknown]
  - Abdominal pain lower [Not Recovered/Not Resolved]
  - Contusion [Not Recovered/Not Resolved]
